FAERS Safety Report 8565824-8 (Version None)
Quarter: 2012Q3

REPORT INFORMATION
  Report Type: 
  Country: None (occurrence: None)
  Receive Date: 20120803
  Receipt Date: 20110804
  Transmission Date: 20120928
  Serious: No
  Sender: FDA-Public Use
  Company Number: US-ABBOTT-10P-163-0663572-00

PATIENT
  Sex: Male
  Weight: 106.69 kg

DRUGS (16)
  1. RAMIPRIL [Concomitant]
     Indication: HYPERTENSION
     Dosage: DAILY DOSE: 10MG
  2. NIASPAN [Suspect]
     Indication: HYPERLIPIDAEMIA
     Dates: start: 20060101, end: 20090101
  3. LIPITOR [Concomitant]
     Indication: PRODUCT USED FOR UNKNOWN INDICATION
     Dosage: DAILY DOSE: 40
  4. MAGNESIUM [Concomitant]
     Indication: MINERAL SUPPLEMENTATION
  5. CARVEDILOL [Concomitant]
     Indication: HYPERTENSION
  6. ASPIRIN [Concomitant]
     Indication: PROPHYLAXIS
  7. FISH OIL [Concomitant]
     Indication: BLOOD CHOLESTEROL INCREASED
  8. GABAPENTIN [Concomitant]
     Indication: PRODUCT USED FOR UNKNOWN INDICATION
     Dosage: DAILY DOSE: 800MG
  9. PROPOXYPHENE HCL [Concomitant]
     Indication: PRODUCT USED FOR UNKNOWN INDICATION
  10. CLOTRIMAZOLE [Concomitant]
     Indication: PRODUCT USED FOR UNKNOWN INDICATION
  11. LOSARTAN POTASSIUM [Concomitant]
     Indication: HYPERTENSION
  12. PRAVASTATIN [Concomitant]
     Indication: BLOOD CHOLESTEROL INCREASED
  13. AVILIDE [Concomitant]
     Indication: PRODUCT USED FOR UNKNOWN INDICATION
     Dosage: 300/25 DAILY
  14. PLAVIX [Concomitant]
     Indication: PRODUCT USED FOR UNKNOWN INDICATION
     Dosage: DAILY DOSE: 75MG
  15. ASPIRIN [Concomitant]
     Indication: CARDIAC DISORDER
  16. NIASPAN [Suspect]
     Indication: BLOOD CHOLESTEROL INCREASED
     Dates: start: 20090101

REACTIONS (2)
  - BLOOD CREATINE INCREASED [None]
  - FLUSHING [None]
